FAERS Safety Report 7577341-2 (Version None)
Quarter: 2011Q2

REPORT INFORMATION
  Report Type: 
  Country: None (occurrence: None)
  Receive Date: 20110628
  Receipt Date: 20091122
  Transmission Date: 20111010
  Serious: Yes (Death, Other)
  Sender: FDA-Public Use
  Company Number: US-BAYER-200939945NA

PATIENT
  Age: 73 Year
  Sex: Female
  Weight: 59 kg

DRUGS (23)
  1. AMBIEN [Concomitant]
     Indication: SLEEP DISORDER
     Dosage: 5 MG, HS
     Route: 048
     Dates: start: 20000810
  2. PRINIVIL [Concomitant]
     Indication: BLOOD PRESSURE MANAGEMENT
     Dosage: 10 MG, UNK
     Route: 048
     Dates: start: 20000810
  3. PROTAMINE SULFATE [Concomitant]
     Dosage: 50 MG, ONCE
     Route: 042
     Dates: start: 20000811, end: 20000811
  4. VERSED [Concomitant]
     Indication: SEDATION
     Dosage: 2 MG, ONCE
     Route: 042
     Dates: start: 20000811, end: 20000811
  5. ACETAMINOPHEN [Concomitant]
     Indication: PAIN
     Dosage: AS NEEDED
     Route: 048
     Dates: end: 20000809
  6. PERCOCET [Concomitant]
     Indication: PAIN
     Dosage: 325/5 MG, UNK
     Route: 048
     Dates: start: 20000809
  7. ETOMIDATE [Concomitant]
     Indication: SEDATION
     Dosage: 1 MG, ONCE
     Route: 042
     Dates: start: 20000811, end: 20000811
  8. ZESTRIL [Concomitant]
     Indication: BLOOD PRESSURE MANAGEMENT
     Dosage: 10 MG, QD
     Route: 048
     Dates: end: 20000809
  9. BUMEX [Concomitant]
     Indication: OEDEMA
     Dosage: 1 MG, QD
     Route: 048
     Dates: end: 20000809
  10. SYNTHROID [Concomitant]
     Indication: HYPOTHYROIDISM
     Dosage: 0.15 MG, QD
     Route: 048
     Dates: end: 20000809
  11. DIAZEPAM [Concomitant]
     Indication: ANXIETY
     Dosage: 1/2 TABLET AT BEDTIME
     Route: 048
     Dates: start: 20000809
  12. COMPAZINE [Concomitant]
     Indication: NAUSEA
     Dosage: 5 MG, UNK
     Route: 048
     Dates: start: 20000810
  13. GENTAMYCIN SULFATE [Concomitant]
     Dosage: 2 MG, ONCE
     Route: 042
     Dates: start: 20000811, end: 20000811
  14. TRASYLOL [Suspect]
     Indication: TRICUSPID VALVE REPLACEMENT
     Dosage: 200 ML, ONCE
     Route: 042
     Dates: start: 20000811, end: 20000811
  15. INDERAL [Concomitant]
     Dosage: UNKNOWN
     Route: 042
     Dates: start: 20000811, end: 20000811
  16. ANCEF [Concomitant]
     Dosage: 1 GM, ONCE
     Route: 042
     Dates: start: 20000811, end: 20000811
  17. HEPARIN [Concomitant]
     Dosage: 10000 U, ONCE
     Route: 042
     Dates: start: 20000811, end: 20000811
  18. RED BLOOD CELLS [Concomitant]
     Dosage: 2 U, UNK
     Route: 042
     Dates: start: 20000811
  19. LANOXIN [Concomitant]
     Dosage: 0.25 MG, QD
     Route: 048
     Dates: end: 20000809
  20. PREMARIN [Concomitant]
     Indication: HORMONE REPLACEMENT THERAPY
     Dosage: 1.25 MG, QD
     Route: 048
     Dates: end: 20000809
  21. PAVULON [Concomitant]
     Dosage: 8 ONCE
     Route: 042
     Dates: start: 20000811, end: 20000811
  22. SPIRONOLACTONE [Concomitant]
     Indication: OEDEMA
     Dosage: 50 MG, QD
     Route: 048
     Dates: end: 20000809
  23. K-DUR [Concomitant]
     Dosage: 20 MEQ, UNK
     Route: 048
     Dates: start: 20000810

REACTIONS (13)
  - DEATH [None]
  - RENAL FAILURE [None]
  - UNEVALUABLE EVENT [None]
  - STRESS [None]
  - ANHEDONIA [None]
  - INJURY [None]
  - FEAR [None]
  - MULTI-ORGAN FAILURE [None]
  - RENAL INJURY [None]
  - EMOTIONAL DISTRESS [None]
  - RENAL IMPAIRMENT [None]
  - ANXIETY [None]
  - PAIN [None]
